FAERS Safety Report 5679205-8 (Version None)
Quarter: 2008Q1

REPORT INFORMATION
  Report Type: 
  Country: None (occurrence: None)
  Receive Date: 20080325
  Receipt Date: 20080314
  Transmission Date: 20080703
  Serious: Yes (Other)
  Sender: FDA-Public Use
  Company Number: US-BAYER-200810618BCC

PATIENT
  Age: 49 Year
  Sex: Female
  Weight: 76 kg

DRUGS (8)
  1. ALEVE [Suspect]
     Indication: MYALGIA
     Dosage: UNIT DOSE: 220 MG
     Route: 048
     Dates: start: 20070101, end: 20070101
  2. LYRICA [Suspect]
     Indication: FIBROMYALGIA
     Dosage: TOTAL DAILY DOSE: 300 MG  UNIT DOSE: 75 MG
     Route: 048
     Dates: start: 20060501, end: 20071201
  3. OXYCONTIN [Concomitant]
     Dosage: TOTAL DAILY DOSE: 30 MG
  4. LORAZEPAM [Concomitant]
  5. SOMA [Concomitant]
     Dosage: TOTAL DAILY DOSE: 1050 MG
  6. TRAZODONE HCL [Concomitant]
  7. ADVIL [Concomitant]
  8. ASPIRIN [Concomitant]
     Indication: HEADACHE

REACTIONS (16)
  - ARTHRALGIA [None]
  - BURNING SENSATION [None]
  - DIZZINESS [None]
  - GENERAL PHYSICAL HEALTH DETERIORATION [None]
  - HEADACHE [None]
  - MENTAL STATUS CHANGES [None]
  - MOOD ALTERED [None]
  - MUSCULAR WEAKNESS [None]
  - MYALGIA [None]
  - MYOPIA [None]
  - PAIN [None]
  - RED BLOOD CELL SEDIMENTATION RATE INCREASED [None]
  - SOMNOLENCE [None]
  - VISION BLURRED [None]
  - VISUAL DISTURBANCE [None]
  - WEST NILE VIRAL INFECTION [None]
